FAERS Safety Report 8386584-X (Version None)
Quarter: 2012Q2

REPORT INFORMATION
  Report Type: 
  Country: None (occurrence: None)
  Receive Date: 20120525
  Receipt Date: 20111103
  Transmission Date: 20120825
  Serious: No
  Sender: FDA-Public Use
  Company Number: US-GLAXOSMITHKLINE-A0951865A

PATIENT
  Age: 72 Year
  Sex: Female

DRUGS (10)
  1. ESTROGEL [Concomitant]
  2. TRAZODONE HCL [Concomitant]
  3. ROZEREM [Concomitant]
  4. EYEDROPS [Concomitant]
  5. VITAMIN D [Concomitant]
  6. FLECAINIDE ACETATE [Concomitant]
  7. VERAMYST [Suspect]
     Indication: EYE ALLERGY
     Dosage: 2SPR PER DAY
     Route: 045
     Dates: start: 20110901
  8. VITAMIN [Concomitant]
  9. COUMADIN [Concomitant]
  10. SINGULAIR [Concomitant]

REACTIONS (3)
  - PRODUCT QUALITY ISSUE [None]
  - OCULAR HYPERAEMIA [None]
  - DRUG INEFFECTIVE [None]
